FAERS Safety Report 6337493-9 (Version None)
Quarter: 2009Q3

REPORT INFORMATION
  Report Type: 
  Country: None (occurrence: None)
  Receive Date: 20090902
  Receipt Date: 20090827
  Transmission Date: 20100115
  Serious: No
  Sender: FDA-Public Use
  Company Number: US-B.I. PHARMACEUTICALS,INC./RIDGEFIELD-2009-BP-10171BP

PATIENT
  Age: 85 Year
  Sex: Female

DRUGS (2)
  1. ZANTAC 150 [Suspect]
     Indication: GASTRITIS
     Dosage: 300 MG
     Route: 048
     Dates: start: 20090701
  2. ZANTAC 150 [Suspect]
     Indication: OESOPHAGITIS

REACTIONS (2)
  - CONSTIPATION [None]
  - DIARRHOEA [None]
